FAERS Safety Report 14318013 (Version 10)
Quarter: 2025Q4

REPORT INFORMATION
  Report Type: Report from Study
  Country: EU (occurrence: EU)
  Receive Date: 20171222
  Receipt Date: 20251107
  Transmission Date: 20260117
  Serious: Yes (Hospitalization, Other)
  Sender: PFIZER
  Company Number: EU-SHIRE-FR201730985

PATIENT
  Age: 4 Year
  Sex: Female

DRUGS (14)
  1. VINCRISTINE SULFATE [Suspect]
     Active Substance: VINCRISTINE SULFATE
     Indication: Acute lymphocytic leukaemia
     Dosage: 1 MG, 1X/DAY
     Route: 042
     Dates: start: 20170615
  2. VINCRISTINE SULFATE [Suspect]
     Active Substance: VINCRISTINE SULFATE
     Dosage: 1.1 MG, 1X/DAY
     Route: 042
     Dates: start: 20171106, end: 20171213
  3. METHOTREXATE SODIUM [Suspect]
     Active Substance: METHOTREXATE SODIUM
     Indication: Acute lymphocytic leukaemia
     Dosage: 17.5 MG, 1X/DAY
     Route: 048
     Dates: start: 20170803
  4. ADRIAMYCIN [Suspect]
     Active Substance: DOXORUBICIN HYDROCHLORIDE
     Indication: Acute lymphocytic leukaemia
     Dosage: 17.4 MG, 1X/DAY
     Route: 042
     Dates: start: 20171106, end: 20171213
  5. CYTARABINE [Suspect]
     Active Substance: CYTARABINE
     Indication: Acute lymphocytic leukaemia
     Dosage: 50 MG, 1X/DAY
     Route: 042
     Dates: start: 20171229, end: 20180118
  6. THIOGUANINE ANHYDROUS [Suspect]
     Active Substance: THIOGUANINE ANHYDROUS
     Indication: Acute lymphocytic leukaemia
     Dosage: 40 MG, 1X/DAY
     Route: 048
     Dates: start: 20171227, end: 20180109
  7. CYCLOPHOSPHAMIDE [Suspect]
     Active Substance: CYCLOPHOSPHAMIDE
     Indication: Acute lymphocytic leukaemia
     Dosage: 650 MG, 1X/DAY
     Route: 042
     Dates: start: 20171227, end: 20171227
  8. METHOTREXATE [Suspect]
     Active Substance: METHOTREXATE
     Indication: Acute lymphocytic leukaemia
     Dosage: 12 MG, 1X/DAY
     Route: 037
     Dates: start: 20170608
  9. METHOTREXATE [Suspect]
     Active Substance: METHOTREXATE
     Dosage: 12 MG, 1X/DAY
     Route: 037
     Dates: start: 20171109, end: 20171109
  10. DEXAMETHASONE [Suspect]
     Active Substance: DEXAMETHASONE
     Indication: Acute lymphocytic leukaemia
     Dosage: 4 MG, 1X/DAY
     Route: 048
     Dates: start: 20170615, end: 20170925
  11. DEXAMETHASONE [Suspect]
     Active Substance: DEXAMETHASONE
     Dosage: 7 MG, 1X/DAY
     Route: 048
     Dates: start: 20171106, end: 20171120
  12. ONCASPAR [Suspect]
     Active Substance: PEGASPARGASE
     Indication: Acute lymphocytic leukaemia
     Dosage: 900 IU, 1X/DAY
     Route: 042
     Dates: start: 20170619
  13. ONCASPAR [Suspect]
     Active Substance: PEGASPARGASE
     Dosage: 1750 IU, 1X/DAY
     Route: 042
     Dates: start: 20171109, end: 20171109
  14. MERCAPTOPURINE [Suspect]
     Active Substance: MERCAPTOPURINE
     Indication: Acute lymphocytic leukaemia
     Dosage: 35 MG, 1X/DAY
     Route: 048
     Dates: start: 20170727

REACTIONS (7)
  - Perineal infection [Recovered/Resolved]
  - Febrile bone marrow aplasia [Recovered/Resolved]
  - Perineal necrosis [Recovered/Resolved]
  - Thrombocytopenia [Recovered/Resolved]
  - Medication error [Recovered/Resolved]
  - Product use in unapproved indication [Unknown]
  - Off label use [Unknown]

NARRATIVE: CASE EVENT DATE: 20171106
